FAERS Safety Report 19521070 (Version 2)
Quarter: 2021Q3

REPORT INFORMATION
  Report Type: Report from Study
  Country: US (occurrence: US)
  Receive Date: 20210712
  Receipt Date: 20210803
  Transmission Date: 20211014
  Serious: Yes (Life-Threatening, Hospitalization)
  Sender: FDA-Public Use
  Company Number: US-EXELIXIS-CABO-21042246

PATIENT
  Sex: Female

DRUGS (14)
  1. CABOMETYX [Suspect]
     Active Substance: CABOZANTINIB S-MALATE
     Indication: ADRENAL GLAND CANCER METASTATIC
     Dosage: 60 MG
     Dates: start: 20200313, end: 20210624
  2. LOMOTIL [Concomitant]
     Active Substance: ATROPINE SULFATE\DIPHENOXYLATE HYDROCHLORIDE
  3. FOLVITE [Concomitant]
     Active Substance: FOLIC ACID
  4. SYNTHROID [Concomitant]
     Active Substance: LEVOTHYROXINE SODIUM
     Indication: HYPOTHYROIDISM
  5. PRESERVISION AREDS [Concomitant]
     Active Substance: MINERALS\VITAMINS
  6. VITAMINN B6 [Concomitant]
  7. BISMUTH. [Concomitant]
     Active Substance: BISMUTH
  8. MAGOX [Concomitant]
  9. PROTONIX [Concomitant]
     Active Substance: PANTOPRAZOLE SODIUM
  10. ACHROMYCIN [Concomitant]
     Active Substance: TETRACYCLINE HYDROCHLORIDE
  11. CORTEF [Concomitant]
     Active Substance: HYDROCORTISONE
     Indication: STEROID DEPENDENCE
  12. LOVENOX [Concomitant]
     Active Substance: ENOXAPARIN SODIUM
     Indication: HEPATIC VEIN THROMBOSIS
  13. FERROUS SULFATE. [Concomitant]
     Active Substance: FERROUS SULFATE
  14. KLOR?CON [Concomitant]
     Active Substance: POTASSIUM CHLORIDE

REACTIONS (8)
  - Melaena [Unknown]
  - Off label use [Unknown]
  - Terminal state [Unknown]
  - Hypokalaemia [Unknown]
  - Breast mass [Unknown]
  - Cytopenia [Unknown]
  - Hypothyroidism [Unknown]
  - Subdural haematoma [Unknown]
